FAERS Safety Report 17200367 (Version 1)
Quarter: 2019Q4

REPORT INFORMATION
  Report Type: Spontaneous
  Country: BR (occurrence: BR)
  Receive Date: 20191226
  Receipt Date: 20191226
  Transmission Date: 20200122
  Serious: Yes (Other)
  Sender: FDA-Public Use
  Company Number: BR-ROCHE-2501165

PATIENT
  Sex: Female

DRUGS (2)
  1. TAMOXIFEN [Suspect]
     Active Substance: TAMOXIFEN
     Indication: BREAST CANCER
     Route: 065
  2. HERCEPTIN [Suspect]
     Active Substance: TRASTUZUMAB
     Indication: BREAST CANCER
     Route: 065

REACTIONS (21)
  - Pain [Unknown]
  - Dyspnoea [Unknown]
  - Palpitations [Unknown]
  - Heart rate increased [Unknown]
  - Arthralgia [Unknown]
  - Muscle spasms [Unknown]
  - Oedema [Unknown]
  - Swelling [Unknown]
  - Neuralgia [Unknown]
  - Endometriosis [Unknown]
  - Nausea [Unknown]
  - Skin swelling [Unknown]
  - Pulmonary mass [Unknown]
  - Asthenia [Unknown]
  - Uterine disorder [Unknown]
  - Ecchymosis [Unknown]
  - Pelvic inflammatory disease [Unknown]
  - Vomiting [Unknown]
  - Cyst [Unknown]
  - Haemorrhage [Unknown]
  - Vision blurred [Unknown]
